FAERS Safety Report 10475290 (Version 1)
Quarter: 2014Q3

REPORT INFORMATION
  Report Type: Spontaneous
  Country: US (occurrence: US)
  Receive Date: 20140925
  Receipt Date: 20140925
  Transmission Date: 20150326
  Serious: Yes (Hospitalization, Other)
  Sender: FDA-Public Use
  Company Number: PHEH2014US018802

PATIENT
  Age: 84 Year
  Sex: Male

DRUGS (13)
  1. ZOMETA [Suspect]
     Active Substance: ZOLEDRONIC ACID
     Dosage: UNK UKN, UNK
     Route: 048
     Dates: start: 201201
  2. LEVOTHYROXINE [Concomitant]
     Active Substance: LEVOTHYROXINE
     Dosage: 125 UG, 1 IN 1 DAY
  3. REVLIMID [Suspect]
     Active Substance: LENALIDOMIDE
     Indication: PLASMA CELL MYELOMA
     Dosage: 10 MG, DAILY
     Route: 048
     Dates: start: 201201
  4. REVLIMID [Suspect]
     Active Substance: LENALIDOMIDE
     Dosage: 10 MG, DAILY
     Route: 048
     Dates: start: 201301
  5. LISINOPRIL. [Concomitant]
     Active Substance: LISINOPRIL
     Dosage: 5 MG 1 IN 1 DAY
  6. DEXAMET//DEXAMETHASONE [Concomitant]
     Indication: PLASMA CELL MYELOMA
     Dosage: UNK UKN, 2.8571MG (4 MG,ON FRIDAY)
     Dates: start: 201301
  7. SODIUM PHOSPHATE [Concomitant]
     Active Substance: SODIUM PHOSPHATE
     Dosage: 500MG(250 MG ,2 IN 1 D)
  8. ZITHROMAX [Concomitant]
     Active Substance: AZITHROMYCIN DIHYDRATE
     Dosage: 250 MG X 5 DAYS
  9. COUMADINE [Concomitant]
     Active Substance: WARFARIN SODIUM
     Indication: PULMONARY EMBOLISM
     Dosage: 4MG( 4 MG ALTERNATING WITH 3 MG) ,3 MG (3 MG ALTERNATING WITH 2 MG)
  10. LASIX [Concomitant]
     Active Substance: FUROSEMIDE
     Dosage: 40 MG,( 40MG 1 IN 1 DAY)
  11. COREG [Concomitant]
     Active Substance: CARVEDILOL
     Dosage: 12.5 MG (6.25 MG, 2 IN 1 DAY)
  12. CARVEDILOL. [Concomitant]
     Active Substance: CARVEDILOL
     Dosage: UNK UKN, 6.25 MG,2 IN 1 DAY
  13. NEUTRA-PHOS [Concomitant]
     Active Substance: POTASSIUM PHOSPHATE, MONOBASIC\SODIUM PHOSPHATE, DIBASIC, ANHYDROUS\SODIUM PHOSPHATE, MONOBASIC, MONOHYDRATE
     Dosage: 5 MG ,1 IN 1 DAY

REACTIONS (7)
  - Osteonecrosis [Unknown]
  - Haemoptysis [Recovered/Resolved]
  - Confusional state [Unknown]
  - Dyspnoea [Unknown]
  - Bronchitis [Recovered/Resolved]
  - Cardiac failure congestive [Recovered/Resolved]
  - Productive cough [Unknown]

NARRATIVE: CASE EVENT DATE: 20140213
